FAERS Safety Report 5350589-3 (Version None)
Quarter: 2007Q2

REPORT INFORMATION
  Report Type: 
  Country: None (occurrence: None)
  Receive Date: 20070608
  Receipt Date: 20070601
  Transmission Date: 20071010
  Serious: Yes (Life-Threatening)
  Sender: FDA-Public Use
  Company Number: JP-BRISTOL-MYERS SQUIBB COMPANY-13805882

PATIENT
  Age: 60 Year
  Sex: Male
  Weight: 66 kg

DRUGS (12)
  1. BREVIBLOC [Suspect]
     Indication: TACHYCARDIA
  2. BREVIBLOC [Suspect]
     Indication: BLOOD PRESSURE INCREASED
  3. NEOSTIGMINE [Suspect]
  4. DIGOXIN [Suspect]
  5. AMLODIPINE [Concomitant]
  6. LOSARTAN POTASSIUM [Concomitant]
  7. FAMOTIDINE [Concomitant]
  8. NATEGLINIDE [Concomitant]
  9. ACARBOSE [Concomitant]
  10. NICARDIPINE HYDROCHLORIDE [Concomitant]
     Indication: BLOOD PRESSURE INCREASED
  11. NICARDIPINE HYDROCHLORIDE [Concomitant]
     Indication: TACHYCARDIA
  12. ATROPINE [Concomitant]
     Indication: CARDIOVERSION

REACTIONS (1)
  - CARDIAC ARREST [None]
